FAERS Safety Report 20081161 (Version 1)
Quarter: 2021Q4

REPORT INFORMATION
  Report Type: Spontaneous
  Country: DE (occurrence: DE)
  Receive Date: 20211117
  Receipt Date: 20211117
  Transmission Date: 20220303
  Serious: Yes (Death, Other)
  Sender: FDA-Public Use
  Company Number: DE-AMGEN-DEUSP2021180174

PATIENT
  Age: 25 Year
  Sex: Male

DRUGS (8)
  1. NEUPOGEN [Suspect]
     Active Substance: FILGRASTIM
     Indication: Haematopoietic stem cell mobilisation
     Dosage: 5 MICROGRAM/KILOGRAM
     Route: 058
  2. METHOTREXATE [Concomitant]
     Active Substance: METHOTREXATE
     Dosage: 12 GRAM PER SQUARE METRE
     Route: 042
  3. CISPLATIN [Concomitant]
     Active Substance: CISPLATIN
     Dosage: 20 MILLIGRAM/SQ. METER
     Route: 042
  4. ETOPOSIDE [Concomitant]
     Active Substance: ETOPOSIDE
     Dosage: 100 MILLIGRAM/SQ. METER
     Route: 042
  5. BLEOMYCIN [Concomitant]
     Active Substance: BLEOMYCIN SULFATE
     Dosage: 30 MILLIGRAM
     Route: 042
  6. IFOSFAMIDE [Concomitant]
     Active Substance: IFOSFAMIDE
     Dosage: 1200 MILLIGRAM/SQ. METER
     Route: 042
  7. CARBOPLATIN [Concomitant]
     Active Substance: CARBOPLATIN
     Dosage: 375 MILLIGRAM/SQ. METER, BID
     Route: 042
  8. DEXAMETHASONE [Concomitant]
     Active Substance: DEXAMETHASONE

REACTIONS (4)
  - Death [Fatal]
  - Seizure [Recovered/Resolved]
  - Pineal germinoma [Unknown]
  - Bone marrow failure [Unknown]
